FAERS Safety Report 7815228-8 (Version None)
Quarter: 2011Q4

REPORT INFORMATION
  Report Type: 
  Country: None (occurrence: None)
  Receive Date: 20111014
  Receipt Date: 20111004
  Transmission Date: 20120403
  Serious: Yes (Death)
  Sender: FDA-Public Use
  Company Number: DE-JNJFOC-20060603840

PATIENT
  Sex: Male

DRUGS (4)
  1. AZATHIOPRINE [Concomitant]
     Indication: CROHN'S DISEASE
     Route: 048
     Dates: start: 19980101
  2. REMICADE [Suspect]
     Route: 042
     Dates: start: 20030528, end: 20030528
  3. REMICADE [Suspect]
     Dosage: 5MG/KG
     Route: 042
     Dates: start: 20030319, end: 20030319
  4. REMICADE [Suspect]
     Indication: CROHN'S DISEASE
     Route: 042
     Dates: start: 20030414, end: 20030414

REACTIONS (1)
  - HEPATOSPLENIC T-CELL LYMPHOMA [None]
